FAERS Safety Report 5054207-3 (Version None)
Quarter: 2006Q3

REPORT INFORMATION
  Report Type: 
  Country: None (occurrence: None)
  Receive Date: 20060713
  Receipt Date: 20060630
  Transmission Date: 20061208
  Serious: Yes (Disabling)
  Sender: FDA-Public Use
  Company Number: S06-FRA-02671-02

PATIENT
  Age: 3 Year
  Sex: Male

DRUGS (1)
  1. CITALOPRAM HYDROBROMIDE [Suspect]
     Indication: PANIC DISORDER WITH AGORAPHOBIA
     Dosage: 20 MG QD TRANSPLACENTAL
     Route: 064

REACTIONS (2)
  - SPEECH DISORDER DEVELOPMENTAL [None]
  - TRANSMISSION OF DRUG VIA SEMEN [None]
